FAERS Safety Report 7276920-X (Version None)
Quarter: 2011Q1

REPORT INFORMATION
  Report Type: 
  Country: None (occurrence: None)
  Receive Date: 20110207
  Receipt Date: 20101228
  Transmission Date: 20110831
  Serious: No
  Sender: FDA-Public Use
  Company Number: US-BIOGENIDEC-2011BI002209

PATIENT
  Age: 54 Year
  Sex: Female

DRUGS (3)
  1. DIPHENHYDRAMINE [Concomitant]
     Indication: PREMEDICATION
  2. PREDNISONE [Concomitant]
     Indication: PREMEDICATION
  3. TYSABRI [Suspect]
     Indication: MULTIPLE SCLEROSIS
     Route: 042

REACTIONS (1)
  - HYPERSENSITIVITY [None]
